FAERS Safety Report 16056344 (Version 1)
Quarter: 2019Q1

REPORT INFORMATION
  Report Type: Spontaneous
  Country: US (occurrence: US)
  Receive Date: 20190308
  Receipt Date: 20190308
  Transmission Date: 20190418
  Serious: No
  Sender: FDA-Public Use
  Company Number: None

PATIENT
  Age: 63 Year
  Sex: Female
  Weight: 99 kg

DRUGS (1)
  1. CAPZASIN HP ARTHRITIS PAIN RELIEF [Suspect]
     Active Substance: CAPSAICIN
     Indication: ARTHRALGIA
     Dosage: ?          QUANTITY:1.5 OUNCE(S);?
     Route: 061
     Dates: start: 20190302, end: 20190304

REACTIONS (3)
  - Pain of skin [None]
  - Skin burning sensation [None]
  - Product use complaint [None]

NARRATIVE: CASE EVENT DATE: 20190304
